FAERS Safety Report 23467971 (Version 2)
Quarter: 2024Q1

REPORT INFORMATION
  Report Type: Spontaneous
  Country: JP (occurrence: JP)
  Receive Date: 20240201
  Receipt Date: 20240211
  Transmission Date: 20240410
  Serious: Yes (Other)
  Sender: FDA-Public Use
  Company Number: JP-DSJP-DSJ-2024-103801

PATIENT

DRUGS (1)
  1. DENOSUMAB [Suspect]
     Active Substance: DENOSUMAB
     Indication: Osteoporosis
     Dosage: 60 MILLIGRAM (60 MG, 4 TIMES IN TOTAL)
     Route: 058
     Dates: start: 20200305, end: 20210907

REACTIONS (4)
  - Pathological fracture [Unknown]
  - Spinal fracture [Recovering/Resolving]
  - Osteonecrosis of jaw [Recovered/Resolved]
  - Fall [Unknown]

NARRATIVE: CASE EVENT DATE: 20220726
